FAERS Safety Report 9639886 (Version 2)
Quarter: 2013Q4

REPORT INFORMATION
  Report Type: Report from Study
  Country: US (occurrence: US)
  Receive Date: 20131023
  Receipt Date: 20131118
  Transmission Date: 20140711
  Serious: Yes (Hospitalization, Other)
  Sender: FDA-Public Use
  Company Number: US-PURDUE-USA-2013-0107729

PATIENT
  Age: 49 Year
  Sex: Female

DRUGS (2)
  1. OXYCONTIN (NDA 22-272) [Suspect]
     Indication: PAIN
     Dosage: 160 MG, Q12H
     Route: 048
     Dates: start: 20130823
  2. OXYCONTIN (NDA 22-272) [Suspect]
     Dosage: 60 MG, TID
     Dates: start: 20130918

REACTIONS (7)
  - Road traffic accident [Unknown]
  - Vascular injury [Unknown]
  - Dysphonia [Unknown]
  - Drug withdrawal syndrome [Unknown]
  - Chills [Unknown]
  - Nausea [Unknown]
  - Vomiting [Unknown]
